FAERS Safety Report 11128199 (Version 3)
Quarter: 2016Q1

REPORT INFORMATION
  Report Type: Report from Study
  Country: US (occurrence: US)
  Receive Date: 20150521
  Receipt Date: 20160115
  Transmission Date: 20160525
  Serious: Yes (Other)
  Sender: FDA-Public Use
  Company Number: US-SA-2013SA133224

PATIENT
  Age: 37 Year
  Sex: Female

DRUGS (2)
  1. PLEGRIDY [Suspect]
     Active Substance: PEGINTERFERON BETA-1A
     Route: 065
     Dates: start: 201502, end: 201507
  2. AUBAGIO [Suspect]
     Active Substance: TERIFLUNOMIDE
     Indication: MULTIPLE SCLEROSIS
     Route: 048
     Dates: start: 20131026, end: 20150201

REACTIONS (11)
  - Myalgia [Not Recovered/Not Resolved]
  - Mastitis [Recovered/Resolved]
  - Diverticulitis [Recovered/Resolved]
  - Localised infection [Recovered/Resolved]
  - Diarrhoea [Recovered/Resolved]
  - Muscular weakness [Recovered/Resolved]
  - Tenderness [Not Recovered/Not Resolved]
  - Rash [Recovered/Resolved]
  - Skin infection [Recovering/Resolving]
  - Furuncle [Recovered/Resolved]
  - Nausea [Recovered/Resolved]

NARRATIVE: CASE EVENT DATE: 2013
